FAERS Safety Report 13585529 (Version 1)
Quarter: 2017Q2

REPORT INFORMATION
  Report Type: Spontaneous
  Country: US (occurrence: US)
  Receive Date: 20170526
  Receipt Date: 20170526
  Transmission Date: 20170830
  Serious: Yes (Death)
  Sender: FDA-Public Use
  Company Number: US-FRESENIUS KABI-FK201704421

PATIENT
  Age: 57 Year
  Sex: Female

DRUGS (7)
  1. DEXAMETHASONE INJECTION (MANUFACTURER UNKNOWN) [Suspect]
     Active Substance: DEXAMETHASONE
     Route: 065
  2. ACYCLOVIR. [Concomitant]
     Active Substance: ACYCLOVIR
     Indication: PROPHYLAXIS
     Route: 065
  3. LENALIDOMIDE [Suspect]
     Active Substance: LENALIDOMIDE
     Indication: PRODUCT USED FOR UNKNOWN INDICATION
     Route: 065
  4. BORTEZOMIB [Concomitant]
     Active Substance: BORTEZOMIB
     Indication: PRODUCT USED FOR UNKNOWN INDICATION
     Route: 065
  5. DEXAMETHASONE INJECTION (MANUFACTURER UNKNOWN) [Suspect]
     Active Substance: DEXAMETHASONE
     Indication: PRODUCT USED FOR UNKNOWN INDICATION
     Route: 065
  6. CARFILZOMIB [Suspect]
     Active Substance: CARFILZOMIB
     Indication: PRODUCT USED FOR UNKNOWN INDICATION
     Route: 065
  7. ATOVAQUONE. [Concomitant]
     Active Substance: ATOVAQUONE
     Indication: PROPHYLAXIS
     Route: 065

REACTIONS (5)
  - Multiple organ dysfunction syndrome [Fatal]
  - Septic shock [Unknown]
  - Pneumonia influenzal [Unknown]
  - Cardio-respiratory arrest [Recovered/Resolved]
  - Systemic candida [Fatal]
